FAERS Safety Report 12870447 (Version 2)
Quarter: 2017Q1

REPORT INFORMATION
  Report Type: Report from Study
  Country: US (occurrence: US)
  Receive Date: 20161020
  Receipt Date: 20170124
  Transmission Date: 20170428
  Serious: No
  Sender: FDA-Public Use
  Company Number: US-AMGEN-USASL2016123379

PATIENT
  Age: 81 Year
  Sex: Female
  Weight: 75.74 kg

DRUGS (2)
  1. REPATHA [Suspect]
     Active Substance: EVOLOCUMAB
     Indication: HYPERCHOLESTEROLAEMIA
     Dosage: 140 MG, Q2WK
     Route: 065
     Dates: start: 20160226
  2. METOPROLOL. [Concomitant]
     Active Substance: METOPROLOL
     Indication: BLOOD PRESSURE ABNORMAL
     Dosage: UNK

REACTIONS (2)
  - Muscle spasms [Recovered/Resolved]
  - Blood pressure diastolic decreased [Recovering/Resolving]

NARRATIVE: CASE EVENT DATE: 2016
